FAERS Safety Report 4710193-4 (Version None)
Quarter: 2005Q3

REPORT INFORMATION
  Report Type: 
  Country: None (occurrence: None)
  Receive Date: 20050709
  Receipt Date: 20050519
  Transmission Date: 20060218
  Serious: Yes (Disabling)
  Sender: FDA-Public Use
  Company Number: FR-MERCK-0505FRA00086

PATIENT
  Age: 45 Year
  Sex: Male

DRUGS (2)
  1. ZETIA [Suspect]
     Indication: HYPERCHOLESTEROLAEMIA
     Route: 048
     Dates: start: 20050330, end: 20050412
  2. RILMENIDINE PHOSPHATE [Concomitant]
     Indication: HYPERTENSION
     Route: 048
     Dates: start: 20031229

REACTIONS (9)
  - BLOOD CREATINE PHOSPHOKINASE INCREASED [None]
  - DIARRHOEA [None]
  - DIPLOPIA [None]
  - HEPATITIS [None]
  - LICHENOID KERATOSIS [None]
  - MUSCLE FATIGUE [None]
  - MYALGIA [None]
  - RASH ERYTHEMATOUS [None]
  - VERTIGO [None]
